FAERS Safety Report 19210923 (Version 1)
Quarter: 2021Q2

REPORT INFORMATION
  Report Type: Spontaneous
  Country: US (occurrence: US)
  Receive Date: 20210504
  Receipt Date: 20210504
  Transmission Date: 20210717
  Serious: Yes (Other)
  Sender: FDA-Public Use
  Company Number: US-AUROBINDO-AUR-APL-2021-017050

PATIENT
  Age: 21 Month
  Sex: Female

DRUGS (11)
  1. ACETAMINOPHEN. [Suspect]
     Active Substance: ACETAMINOPHEN
     Indication: PREMEDICATION
     Dosage: 10 MILLIGRAM/KILOGRAM
     Route: 048
  2. DIPHENHYDRAMINE. [Suspect]
     Active Substance: DIPHENHYDRAMINE
     Indication: PREMEDICATION
     Dosage: 1 MILLIGRAM/KILOGRAM
     Route: 042
  3. RIASTAP [Concomitant]
     Active Substance: FIBRINOGEN HUMAN
     Dosage: 10 MILLILITER/HOUR
     Route: 065
  4. ONDANSETRON [Suspect]
     Active Substance: ONDANSETRON
     Indication: PREMEDICATION
     Dosage: UNK
     Route: 065
  5. HYDROCORTISONE. [Suspect]
     Active Substance: HYDROCORTISONE
     Indication: PREMEDICATION
     Dosage: 1?2 MG/KG
     Route: 042
  6. RIASTAP [Concomitant]
     Active Substance: FIBRINOGEN HUMAN
     Dosage: 20 MILLILITER/HOUR
     Route: 065
  7. RIASTAP [Concomitant]
     Active Substance: FIBRINOGEN HUMAN
     Dosage: 40 MILLILITER/HOUR
     Route: 065
  8. RIASTAP [Concomitant]
     Active Substance: FIBRINOGEN HUMAN
     Dosage: 60 MILLILITER/HOUR
     Route: 065
  9. RANITIDINE. [Suspect]
     Active Substance: RANITIDINE
     Indication: PREMEDICATION
     Dosage: 150 MILLIGRAM
     Route: 048
  10. RIASTAP [Concomitant]
     Active Substance: FIBRINOGEN HUMAN
     Indication: PRODUCT USED FOR UNKNOWN INDICATION
     Dosage: 2 MILLILITER/HOUR
     Route: 065
  11. RIASTAP [Concomitant]
     Active Substance: FIBRINOGEN HUMAN
     Dosage: 5 MILLILITER/HOUR
     Route: 065

REACTIONS (1)
  - Drug ineffective [Unknown]
